FAERS Safety Report 25680118 (Version 2)
Quarter: 2025Q3

REPORT INFORMATION
  Report Type: Spontaneous
  Country: CN (occurrence: CN)
  Receive Date: 20250814
  Receipt Date: 20250903
  Transmission Date: 20251021
  Serious: Yes (Death, Life-Threatening, Other)
  Sender: ALKEM
  Company Number: None

PATIENT
  Age: 30 Year
  Sex: Male

DRUGS (1)
  1. TACROLIMUS [Suspect]
     Active Substance: TACROLIMUS
     Indication: Immunosuppressant drug therapy
     Route: 065
     Dates: start: 202208

REACTIONS (7)
  - Respiratory failure [Fatal]
  - Multiple organ dysfunction syndrome [Fatal]
  - Scabies [Fatal]
  - Infection [Fatal]
  - Renal impairment [Unknown]
  - Epstein-Barr viraemia [Unknown]
  - Cardiopulmonary failure [Unknown]

NARRATIVE: CASE EVENT DATE: 20221201
